FAERS Safety Report 9564676 (Version 1)
Quarter: 2013Q3

REPORT INFORMATION
  Report Type: Spontaneous
  Country: US (occurrence: US)
  Receive Date: 20130930
  Receipt Date: 20130930
  Transmission Date: 20140515
  Serious: No
  Sender: FDA-Public Use
  Company Number: US-PFIZER INC-2013279729

PATIENT
  Age: 54 Year
  Sex: Female
  Weight: 109 kg

DRUGS (5)
  1. NICOTROL NASAL SPRAY [Suspect]
     Indication: SMOKING CESSATION THERAPY
     Dosage: UNK
     Route: 045
     Dates: start: 201309
  2. DILANTIN [Concomitant]
     Indication: CONVULSION
     Dosage: 200MG TWO TIMES A DAY,.ADDITIONAL 50 MG EVERY OTHER DAY
  3. LYRICA [Concomitant]
     Dosage: 100 MG, 1X/DAY
  4. OMEPRAZOLE [Concomitant]
     Indication: GASTRIC DISORDER
     Dosage: 40 MG, 1X/DAY
  5. NICOTINE [Concomitant]
     Dosage: 21 MG, UNK

REACTIONS (1)
  - Paraesthesia oral [Not Recovered/Not Resolved]
